FAERS Safety Report 5196060-3 (Version None)
Quarter: 2007Q1

REPORT INFORMATION
  Report Type: 
  Country: None (occurrence: None)
  Receive Date: 20070102
  Receipt Date: 20061222
  Transmission Date: 20070707
  Serious: Yes (Other)
  Sender: FDA-Public Use
  Company Number: DE-ELI_LILLY_AND_COMPANY-DE200612004565

PATIENT
  Sex: Female

DRUGS (3)
  1. CALCIUM [Concomitant]
     Indication: LOW TURNOVER OSTEOPATHY
     Dosage: 1000 MG, DAILY (1/D)
     Route: 048
  2. COLECALCIFEROL [Concomitant]
     Indication: LOW TURNOVER OSTEOPATHY
     Dosage: 0.025 MG, DAILY (1/D)
     Route: 048
  3. FORTEO [Suspect]
     Route: 058

REACTIONS (4)
  - ALANINE AMINOTRANSFERASE INCREASED [None]
  - ASPARTATE AMINOTRANSFERASE INCREASED [None]
  - CHRONIC LYMPHOCYTIC LEUKAEMIA [None]
  - GAMMA-GLUTAMYLTRANSFERASE INCREASED [None]
